FAERS Safety Report 24546581 (Version 3)
Quarter: 2025Q3

REPORT INFORMATION
  Report Type: Spontaneous
  Country: JP (occurrence: JP)
  Receive Date: 20241024
  Receipt Date: 20250803
  Transmission Date: 20251020
  Serious: Yes (Other)
  Sender: ALEXION PHARMACEUTICALS
  Company Number: JP-ASTRAZENECA-240104946_063010_P_1

PATIENT
  Age: 52 Year
  Sex: Male

DRUGS (8)
  1. DAPAGLIFLOZIN [Suspect]
     Active Substance: DAPAGLIFLOZIN
     Indication: Type 2 diabetes mellitus
     Dosage: AFTER BREAKFAST
     Dates: start: 20220519
  2. DAPAGLIFLOZIN [Suspect]
     Active Substance: DAPAGLIFLOZIN
     Dosage: AFTER BREAKFAST
     Dates: start: 20220519
  3. TRESIBA [Concomitant]
     Active Substance: INSULIN DEGLUDEC
     Indication: Type 2 diabetes mellitus
     Route: 065
  4. TENELIGLIPTIN [Concomitant]
     Active Substance: TENELIGLIPTIN
     Dosage: AFTER BREAKFAST
     Dates: start: 202205
  5. ENTRESTO [Concomitant]
     Active Substance: SACUBITRIL\VALSARTAN
     Dosage: AFTER BREAKFAST
     Dates: start: 202205
  6. LIPITOR [Concomitant]
     Active Substance: ATORVASTATIN CALCIUM
     Dosage: AFTER BREAKFAST
     Dates: start: 202205
  7. DAPRODUSTAT [Concomitant]
     Active Substance: DAPRODUSTAT
     Dosage: AFTER BREAKFAST
     Dates: start: 202205
  8. Diart [Concomitant]
     Dosage: AFTER BREAKFAST
     Dates: start: 202205

REACTIONS (7)
  - Renal impairment [Unknown]
  - Glaucoma [Unknown]
  - Retinopathy proliferative [Unknown]
  - Macular oedema [Unknown]
  - Oedema [Unknown]
  - Weight increased [Unknown]
  - Dyspnoea [Unknown]

NARRATIVE: CASE EVENT DATE: 20230301
